FAERS Safety Report 12725423 (Version 3)
Quarter: 2016Q4

REPORT INFORMATION
  Report Type: Report from Study
  Country: US (occurrence: US)
  Receive Date: 20160908
  Receipt Date: 20161005
  Transmission Date: 20170207
  Serious: Yes (Death, Other)
  Sender: FDA-Public Use
  Company Number: US-PFIZER INC-2016417950

PATIENT
  Age: 26 Year
  Sex: Female

DRUGS (20)
  1. METHYLPREDNISOLONE SODIUM SUCCINATE. [Suspect]
     Active Substance: METHYLPREDNISOLONE SODIUM SUCCINATE
     Indication: STILL^S DISEASE ADULT ONSET
     Dosage: 60 MG, EVERY 6 HRS, (ON DAY 13)
     Route: 042
  2. CYCLOSPORINE. [Suspect]
     Active Substance: CYCLOSPORINE
     Indication: STILL^S DISEASE ADULT ONSET
     Dosage: 3 MG/KG, DAILY
     Route: 042
  3. AZITHROMYCIN ANHYDROUS. [Concomitant]
     Active Substance: AZITHROMYCIN ANHYDROUS
     Indication: PNEUMONIA
     Dosage: UNK
  4. CYCLOSPORINE. [Suspect]
     Active Substance: CYCLOSPORINE
     Indication: HISTIOCYTOSIS HAEMATOPHAGIC
  5. PREDNISONE. [Suspect]
     Active Substance: PREDNISONE
     Indication: ACUTE RESPIRATORY DISTRESS SYNDROME
  6. PIPERACILLIN SODIUM/TAZOBACTAM [Concomitant]
     Indication: PNEUMONIA
     Dosage: UNK
  7. METOCLOPRAMIDE. [Concomitant]
     Active Substance: METOCLOPRAMIDE
  8. CYCLOSPORINE. [Suspect]
     Active Substance: CYCLOSPORINE
     Indication: ACUTE RESPIRATORY DISTRESS SYNDROME
  9. PREDNISONE. [Suspect]
     Active Substance: PREDNISONE
     Indication: HISTIOCYTOSIS HAEMATOPHAGIC
  10. VANCOMYCIN [Concomitant]
     Active Substance: VANCOMYCIN
     Indication: ANTIBIOTIC THERAPY
     Dosage: UNK
  11. METRONIDAZOLE. [Concomitant]
     Active Substance: METRONIDAZOLE
     Indication: ANTIBIOTIC THERAPY
     Dosage: UNK
  12. CEFTRIAXONE. [Concomitant]
     Active Substance: CEFTRIAXONE
     Indication: PNEUMONIA
     Dosage: UNK
  13. IMIPENEM [Concomitant]
     Active Substance: IMIPENEM
     Indication: ANTIBIOTIC THERAPY
  14. FLUCONAZOLE. [Concomitant]
     Active Substance: FLUCONAZOLE
     Dosage: UNK
  15. METHYLPREDNISOLONE SODIUM SUCCINATE. [Suspect]
     Active Substance: METHYLPREDNISOLONE SODIUM SUCCINATE
     Indication: HISTIOCYTOSIS HAEMATOPHAGIC
  16. PREDNISONE. [Suspect]
     Active Substance: PREDNISONE
     Indication: STILL^S DISEASE ADULT ONSET
     Dosage: 60 MG, DAILY
     Route: 042
  17. PHENYTOIN. [Concomitant]
     Active Substance: PHENYTOIN
     Indication: SEIZURE
     Dosage: UNK
  18. TOBRAMYCIN. [Concomitant]
     Active Substance: TOBRAMYCIN
     Indication: ANTIBIOTIC THERAPY
     Dosage: UNK
  19. METHYLPREDNISOLONE SODIUM SUCCINATE. [Suspect]
     Active Substance: METHYLPREDNISOLONE SODIUM SUCCINATE
     Indication: ACUTE RESPIRATORY DISTRESS SYNDROME
     Dosage: 1000 MG, DAILY, (PULSE)
     Route: 042
  20. LORAZEPAM. [Concomitant]
     Active Substance: LORAZEPAM
     Indication: SEIZURE
     Dosage: UNK

REACTIONS (2)
  - Disease recurrence [Fatal]
  - Drug ineffective [Fatal]
